FAERS Safety Report 16856763 (Version 1)
Quarter: 2019Q3

REPORT INFORMATION
  Report Type: Spontaneous
  Country: ES (occurrence: ES)
  Receive Date: 20190926
  Receipt Date: 20190926
  Transmission Date: 20191005
  Serious: Yes (Other)
  Sender: FDA-Public Use
  Company Number: ES-MYLANLABS-2019M1089078

PATIENT
  Age: 53 Year
  Sex: Male
  Weight: 86 kg

DRUGS (3)
  1. OMEPRAZOL                          /00661201/ [Concomitant]
     Active Substance: OMEPRAZOLE
     Dosage: UNK
  2. FENOFIBRATO [Concomitant]
     Active Substance: FENOFIBRATE
     Dosage: UNK
  3. IMATINIB. [Suspect]
     Active Substance: IMATINIB MESYLATE
     Indication: PRODUCT USED FOR UNKNOWN INDICATION
     Dosage: 400 MILLIGRAM, BID, 400MG/12H
     Route: 048
     Dates: start: 20180108, end: 20190311

REACTIONS (1)
  - Necrotising panniculitis [Recovering/Resolving]

NARRATIVE: CASE EVENT DATE: 20190219
